FAERS Safety Report 23827883 (Version 2)
Quarter: 2024Q2

REPORT INFORMATION
  Report Type: Spontaneous
  Country: JP (occurrence: JP)
  Receive Date: 20240507
  Receipt Date: 20240617
  Transmission Date: 20240715
  Serious: Yes (Other)
  Sender: FDA-Public Use
  Company Number: JP-009507513-2405JPN001406

PATIENT
  Age: 51 Year
  Sex: Female

DRUGS (1)
  1. TEMOZOLOMIDE [Suspect]
     Active Substance: TEMOZOLOMIDE
     Indication: Malignant oligodendroglioma
     Dosage: UNK, CYCLICAL
     Route: 048

REACTIONS (4)
  - Malignant neoplasm progression [Unknown]
  - Drug resistance [Unknown]
  - DNA mismatch repair protein gene mutation [Unknown]
  - Hypermutation [Unknown]
